FAERS Safety Report 4930449-X (Version None)
Quarter: 2006Q1

REPORT INFORMATION
  Report Type: 
  Country: None (occurrence: None)
  Receive Date: 20060302
  Receipt Date: 20060214
  Transmission Date: 20060701
  Serious: Yes (Death)
  Sender: FDA-Public Use
  Company Number: DE-GILEAD-2006-0009220

PATIENT
  Sex: Male
  Weight: 45.6 kg

DRUGS (9)
  1. EMTRICITABINE/TENOFOVIR DISOPROXIL FUMARATE [Suspect]
     Indication: HIV INFECTION
     Route: 048
     Dates: start: 20050830, end: 20060205
  2. SUSTIVA [Concomitant]
     Indication: HIV INFECTION
     Route: 048
     Dates: start: 20050830
  3. DIFLUCAN [Concomitant]
     Indication: ORAL CANDIDIASIS
     Route: 048
     Dates: start: 20050515
  4. PENTACARINAT [Concomitant]
     Indication: PNEUMOCYSTIS JIROVECI PNEUMONIA
     Route: 055
     Dates: start: 20050802
  5. NEUPOGEN [Concomitant]
     Indication: ANAEMIA
     Route: 058
     Dates: start: 20050820
  6. MYCOBUTIN [Concomitant]
     Indication: ATYPICAL MYCOBACTERIAL INFECTION
     Route: 048
     Dates: start: 20051222
  7. ZYLORIC [Concomitant]
     Indication: BLOOD URIC ACID INCREASED
     Route: 048
     Dates: start: 20050820
  8. KLACID [Concomitant]
     Indication: ATYPICAL MYCOBACTERIAL INFECTION
     Route: 048
     Dates: start: 20050515
  9. CYCLOPHOSPHAMIDE DOXORUBICIN [Concomitant]

REACTIONS (3)
  - B-CELL LYMPHOMA [None]
  - COMA HEPATIC [None]
  - KAPOSI'S SARCOMA [None]
